FAERS Safety Report 4694934-0 (Version None)
Quarter: 2005Q2

REPORT INFORMATION
  Report Type: 
  Country: None (occurrence: None)
  Receive Date: 20050620
  Receipt Date: 20050610
  Transmission Date: 20051028
  Serious: Yes (Other)
  Sender: FDA-Public Use
  Company Number: CHNY2005JP01167

PATIENT

DRUGS (1)
  1. PURSENNID                (SENNA GLYCOSIDES) [Suspect]
     Dosage: ORAL
     Route: 048

REACTIONS (1)
  - PROCTITIS [None]
